FAERS Safety Report 16702101 (Version 1)
Quarter: 2019Q3

REPORT INFORMATION
  Report Type: Spontaneous
  Country: US (occurrence: US)
  Receive Date: 20190813
  Receipt Date: 20190813
  Transmission Date: 20191004
  Serious: Yes (Hospitalization, Disabling)
  Sender: FDA-Public Use
  Company Number: None

PATIENT
  Age: 66 Year
  Sex: Male

DRUGS (9)
  1. LISINOPRIL 20 MG [Concomitant]
     Active Substance: LISINOPRIL
  2. ALPRAZOLAM 1 MG [Concomitant]
     Active Substance: ALPRAZOLAM
  3. ASPIRIN 81 MG [Concomitant]
     Active Substance: ASPIRIN
  4. ATORVASTATIN 10 MG [Concomitant]
     Active Substance: ATORVASTATIN
  5. CYMBALTA [Concomitant]
     Active Substance: DULOXETINE HYDROCHLORIDE
  6. METFORMIN 1,000 MG [Concomitant]
  7. RITALIN 10 MG [Concomitant]
  8. JARDIANCE [Suspect]
     Active Substance: EMPAGLIFLOZIN
     Route: 048
  9. ARIPIPRAZOLE 20 MG [Concomitant]
     Active Substance: ARIPIPRAZOLE

REACTIONS (3)
  - Fournier^s gangrene [None]
  - Scrotal abscess [None]
  - Groin pain [None]

NARRATIVE: CASE EVENT DATE: 20190812
